FAERS Safety Report 11883506 (Version 1)
Quarter: 2015Q4

REPORT INFORMATION
  Report Type: Spontaneous
  Country: IT (occurrence: IT)
  Receive Date: 20151231
  Receipt Date: 20151231
  Transmission Date: 20160305
  Serious: Yes (Other)
  Sender: FDA-Public Use
  Company Number: PHHY2015IT170233

PATIENT
  Age: 72 Year
  Sex: Male

DRUGS (2)
  1. SUNITINIB MALATE. [Suspect]
     Active Substance: SUNITINIB MALATE
     Indication: RENAL CELL CARCINOMA
     Dosage: 37.5 MG, CYCLIC (2 WEEKS ON, ONE WEEK OFF)
     Route: 065
     Dates: start: 201508
  2. PAZOPANIB [Suspect]
     Active Substance: PAZOPANIB
     Indication: RENAL CELL CARCINOMA
     Dosage: 800 MG, QD
     Route: 065
     Dates: start: 201305

REACTIONS (13)
  - Renal necrosis [Unknown]
  - Pelvic mass [Recovering/Resolving]
  - Stomatitis [Recovering/Resolving]
  - Diarrhoea [Recovered/Resolved]
  - Drug intolerance [Recovering/Resolving]
  - Weight decreased [Recovered/Resolved]
  - Fatigue [Recovering/Resolving]
  - Asthenia [Recovering/Resolving]
  - Weight decreased [Recovering/Resolving]
  - Metastases to adrenals [Unknown]
  - Blood pressure increased [Recovering/Resolving]
  - Therapeutic response decreased [Unknown]
  - Stomatitis [Recovered/Resolved]

NARRATIVE: CASE EVENT DATE: 201305
